FAERS Safety Report 25906679 (Version 3)
Quarter: 2025Q4

REPORT INFORMATION
  Report Type: Report from Study
  Country: GB (occurrence: GB)
  Receive Date: 20251010
  Receipt Date: 20251210
  Transmission Date: 20260117
  Serious: Yes (Other)
  Sender: NOVARTIS
  Company Number: GB-002147023-NVSC2025GB157592

PATIENT
  Sex: Female

DRUGS (3)
  1. KESIMPTA [Suspect]
     Active Substance: OFATUMUMAB
     Indication: Multiple sclerosis
     Dosage: 20 MG, QMO
     Route: 058
     Dates: start: 202504
  2. AMITRIPTYLINE [Concomitant]
     Active Substance: AMITRIPTYLINE
     Indication: Product used for unknown indication
     Dosage: UNK
     Route: 065
  3. VENLAFAXINE [Concomitant]
     Active Substance: VENLAFAXINE HYDROCHLORIDE
     Indication: Product used for unknown indication
     Dosage: UNK
     Route: 065

REACTIONS (3)
  - Pneumonia [Unknown]
  - Malaise [Unknown]
  - Infection [Unknown]
